FAERS Safety Report 5833147-3 (Version None)
Quarter: 2008Q3

REPORT INFORMATION
  Report Type: 
  Country: None (occurrence: None)
  Receive Date: 20080805
  Receipt Date: 20080725
  Transmission Date: 20090109
  Serious: Yes (Hospitalization)
  Sender: FDA-Public Use
  Company Number: US-WYE-H05281708

PATIENT
  Sex: Male

DRUGS (1)
  1. TORISEL [Suspect]
     Indication: RENAL CANCER METASTATIC
     Dosage: 25MG AT UNKNOWN FREQUENCY
     Route: 042
     Dates: start: 20080401

REACTIONS (2)
  - ABDOMINAL PAIN [None]
  - GASTROINTESTINAL OEDEMA [None]
